FAERS Safety Report 10682499 (Version 2)
Quarter: 2015Q1

REPORT INFORMATION
  Report Type: Spontaneous
  Country: US (occurrence: US)
  Receive Date: 20141230
  Receipt Date: 20150209
  Transmission Date: 20150720
  Serious: No
  Sender: FDA-Public Use
  Company Number: US-ASTRAZENECA-2014SE98644

PATIENT
  Sex: Male

DRUGS (2)
  1. PULMICORT FLEXHALER [Suspect]
     Active Substance: BUDESONIDE
     Indication: SARCOIDOSIS
     Dosage: 2 PUFFS TWICE DAILY
     Route: 055
     Dates: start: 201411
  2. PULMICORT FLEXHALER [Suspect]
     Active Substance: BUDESONIDE
     Indication: SARCOIDOSIS
     Dosage: 360 UG, 2 PUFFS BID
     Route: 055
     Dates: start: 20141213

REACTIONS (4)
  - Arthralgia [Recovered/Resolved]
  - Granuloma [Recovered/Resolved]
  - Product use issue [Not Recovered/Not Resolved]
  - Cough [Recovered/Resolved]
